FAERS Safety Report 7090650-9 (Version None)
Quarter: 2010Q4

REPORT INFORMATION
  Report Type: 
  Country: None (occurrence: None)
  Receive Date: 20101109
  Receipt Date: 20090507
  Transmission Date: 20110411
  Serious: No
  Sender: FDA-Public Use
  Company Number: US-KINGPHARMUSA00001-K200900558

PATIENT
  Sex: Female
  Weight: 90.703 kg

DRUGS (3)
  1. FLECTOR [Suspect]
     Indication: ARTHRALGIA
     Dosage: 1 PATCH, UNK
     Route: 061
     Dates: start: 20090505, end: 20090506
  2. CENESTIN [Concomitant]
     Indication: HORMONE REPLACEMENT THERAPY
     Dosage: 0.9 MG, QD
  3. ZOLOFT [Concomitant]
     Indication: PAIN
     Dosage: 100 MG, QD

REACTIONS (6)
  - ARTHRALGIA [None]
  - EYE PAIN [None]
  - FEELING ABNORMAL [None]
  - FLUSHING [None]
  - MIGRAINE [None]
  - PAIN [None]
